FAERS Safety Report 19608976 (Version 2)
Quarter: 2023Q1

REPORT INFORMATION
  Report Type: Spontaneous
  Country: CN (occurrence: CN)
  Receive Date: 20210726
  Receipt Date: 20230127
  Transmission Date: 20230417
  Serious: Yes (Death, Other)
  Sender: FDA-Public Use
  Company Number: CN-TEVA-2021-CN-1934734

PATIENT
  Age: 25 Year
  Sex: Male

DRUGS (3)
  1. AUSTEDO [Suspect]
     Active Substance: DEUTETRABENAZINE
     Indication: Huntington^s disease
     Dosage: 24 MILLIGRAM DAILY; GRADUALLY INCREASED TO 24MG/DAY
     Route: 048
     Dates: start: 20210220
  2. AUSTEDO [Suspect]
     Active Substance: DEUTETRABENAZINE
     Dosage: 24 MILLIGRAM DAILY;
     Route: 048
     Dates: end: 202105
  3. AUSTEDO [Suspect]
     Active Substance: DEUTETRABENAZINE
     Dosage: 18 MILLIGRAM DAILY;
     Route: 048

REACTIONS (4)
  - Dysphagia [Fatal]
  - Choking [Fatal]
  - Asphyxia [Fatal]
  - Drug ineffective [Unknown]

NARRATIVE: CASE EVENT DATE: 20210703
